FAERS Safety Report 19697398 (Version 1)
Quarter: 2021Q3

REPORT INFORMATION
  Report Type: Spontaneous
  Country: US (occurrence: US)
  Receive Date: 20210813
  Receipt Date: 20210813
  Transmission Date: 20211014
  Serious: No
  Sender: FDA-Public Use
  Company Number: None

PATIENT
  Age: 68 Year
  Sex: Male
  Weight: 69.3 kg

DRUGS (17)
  1. PROZAC [Concomitant]
     Active Substance: FLUOXETINE HYDROCHLORIDE
  2. KLONOPIN [Concomitant]
     Active Substance: CLONAZEPAM
  3. MULTIVITAMIN [Concomitant]
     Active Substance: VITAMINS
  4. VITAMIN D3 [Concomitant]
     Active Substance: CHOLECALCIFEROL
  5. DEXTROAMPHETAMINE. [Concomitant]
     Active Substance: DEXTROAMPHETAMINE
  6. PROBIOTIC [Concomitant]
     Active Substance: PROBIOTICS NOS
  7. SEROQUEL [Concomitant]
     Active Substance: QUETIAPINE FUMARATE
  8. ATORVASTATIN [Concomitant]
     Active Substance: ATORVASTATIN
  9. STOOL SOFTENER (DOCUSATE) [Concomitant]
     Active Substance: DOCUSATE
  10. VITAMIN B12 [Concomitant]
     Active Substance: CYANOCOBALAMIN
  11. ZINC. [Concomitant]
     Active Substance: ZINC
  12. RESTASIS [Suspect]
     Active Substance: CYCLOSPORINE
     Indication: DRY EYE
     Dosage: ?          QUANTITY:1 DROP(S);?
     Route: 047
  13. VESPECA [Concomitant]
  14. VITAMIN C [Concomitant]
     Active Substance: ASCORBIC ACID
  15. BABY ASPIRIN [Concomitant]
     Active Substance: ASPIRIN
  16. FOLIC ACID. [Concomitant]
     Active Substance: FOLIC ACID
  17. CASCARA SAGRADA [Concomitant]
     Active Substance: FRANGULA PURSHIANA BARK

REACTIONS (2)
  - Eye pain [None]
  - Blindness [None]

NARRATIVE: CASE EVENT DATE: 20210812
